FAERS Safety Report 4996188-4 (Version None)
Quarter: 2006Q2

REPORT INFORMATION
  Report Type: 
  Country: None (occurrence: None)
  Receive Date: 20060504
  Receipt Date: 20060421
  Transmission Date: 20061013
  Serious: Yes (Hospitalization)
  Sender: FDA-Public Use
  Company Number: 2006027817

PATIENT
  Age: 52 Year
  Sex: Female
  Weight: 44 kg

DRUGS (4)
  1. IRINOTECAN HCL [Suspect]
     Indication: RECTAL CANCER
     Dosage: 130 MG/BODY INTERMITTENT, INTRAVENOUS
     Route: 042
     Dates: start: 20051125, end: 20060113
  2. FLUOROURACIL [Suspect]
     Indication: RECTAL CANCER
     Dosage: 2000 MG /BODY (1 IN 1 WK) INTRAVENOUS
     Route: 042
     Dates: start: 20051125, end: 20060113
  3. CALCIUM LEVOFOLINATE [Suspect]
     Indication: RECTAL CANCER
     Dosage: 350 MG/BODY (1 IN 1 WK) INTRAVENOUS
     Route: 042
     Dates: start: 20051125, end: 20060113
  4. SOLU-CORTEF [Concomitant]

REACTIONS (11)
  - ANOREXIA [None]
  - DEHYDRATION [None]
  - DISCOMFORT [None]
  - ELECTROCARDIOGRAM ABNORMAL [None]
  - FALL [None]
  - INFUSION RELATED REACTION [None]
  - MALAISE [None]
  - SPECIFIC GRAVITY URINE INCREASED [None]
  - SYNCOPE [None]
  - URINARY INCONTINENCE [None]
  - VOMITING [None]
